FAERS Safety Report 5970956-4 (Version None)
Quarter: 2008Q4

REPORT INFORMATION
  Report Type: 
  Country: None (occurrence: None)
  Receive Date: 20081128
  Receipt Date: 20081119
  Transmission Date: 20090506
  Serious: Yes (Other)
  Sender: FDA-Public Use
  Company Number: PHHY2008DE28448

PATIENT
  Sex: Female

DRUGS (5)
  1. RASILEZ [Suspect]
     Indication: HYPERTENSION
     Dosage: 150 MG, UNK
     Dates: start: 20081105, end: 20081107
  2. AMLODIPIN ^ORIFARM^ [Concomitant]
     Dosage: 5 MG
  3. BISOPROLOL FUMARATE [Concomitant]
     Dosage: 10 MG
  4. XIPAMIDE [Concomitant]
     Dosage: 20 MG
  5. ATACAND [Concomitant]
     Dosage: 16 MG

REACTIONS (4)
  - EATING DISORDER [None]
  - GINGIVAL ERYTHEMA [None]
  - GINGIVAL SWELLING [None]
  - OEDEMA MOUTH [None]
